FAERS Safety Report 9765337 (Version 1)
Quarter: 2013Q4

REPORT INFORMATION
  Report Type: Spontaneous
  Country: US (occurrence: US)
  Receive Date: 20131217
  Receipt Date: 20131217
  Transmission Date: 20140711
  Serious: No
  Sender: FDA-Public Use
  Company Number: US-BIOGENIDEC-2013BI112583

PATIENT
  Sex: Female

DRUGS (21)
  1. TECFIDERA [Suspect]
     Indication: MULTIPLE SCLEROSIS
     Route: 048
     Dates: start: 201309
  2. CARVEDILOL [Concomitant]
  3. ECOTRIN [Concomitant]
  4. ESCITALOPRAM OXALATE [Concomitant]
  5. FERROUS GLUCONATE [Concomitant]
  6. FOLIC ACID [Concomitant]
  7. HYDRALAZINE HCL [Concomitant]
  8. KEPPRA [Concomitant]
  9. LAMICTAL XR [Concomitant]
  10. LOSARTAN POTASSIUM [Concomitant]
  11. LOVAZA [Concomitant]
  12. METFORMIN HCL [Concomitant]
  13. NAMENDA [Concomitant]
  14. NORVASC [Concomitant]
  15. OXYBUTYNIN CL ER [Concomitant]
  16. PLAVIX [Concomitant]
  17. SEROQUEL [Concomitant]
  18. SIMVASTATIN [Concomitant]
  19. TIZANIDINE HCL [Concomitant]
  20. TRAZODONE HCL [Concomitant]
  21. VIT D [Concomitant]

REACTIONS (2)
  - Crying [Unknown]
  - Constipation [Unknown]
